FAERS Safety Report 14186011 (Version 1)
Quarter: 2017Q4

REPORT INFORMATION
  Report Type: Spontaneous
  Country: US (occurrence: US)
  Receive Date: 20171114
  Receipt Date: 20171114
  Transmission Date: 20180321
  Serious: No
  Sender: FDA-Public Use
  Company Number: US-MITSUBISHI TANABE PHARMA CORPORATION-MPE2017-0023203

PATIENT
  Age: 65 Year
  Sex: Female

DRUGS (6)
  1. RADICAVA [Suspect]
     Active Substance: EDARAVONE
     Route: 042
     Dates: start: 20170918, end: 20170922
  2. RADICAVA [Suspect]
     Active Substance: EDARAVONE
     Route: 042
     Dates: start: 20170925, end: 20170929
  3. RADICAVA [Suspect]
     Active Substance: EDARAVONE
     Indication: AMYOTROPHIC LATERAL SCLEROSIS
     Route: 042
     Dates: start: 20170821, end: 20170903
  4. RADICAVA [Suspect]
     Active Substance: EDARAVONE
     Route: 042
     Dates: start: 20171025, end: 20171029
  5. BYSTOLIC [Concomitant]
     Active Substance: NEBIVOLOL HYDROCHLORIDE
     Route: 065
  6. RADICAVA [Suspect]
     Active Substance: EDARAVONE
     Route: 042
     Dates: start: 20171018, end: 20171022

REACTIONS (1)
  - Therapeutic response unexpected [Not Recovered/Not Resolved]
